FAERS Safety Report 25848800 (Version 1)
Quarter: 2025Q3

REPORT INFORMATION
  Report Type: Spontaneous
  Country: TH (occurrence: TH)
  Receive Date: 20250925
  Receipt Date: 20250925
  Transmission Date: 20251020
  Serious: Yes (Other)
  Sender: NOVARTIS
  Company Number: TH-002147023-NVSC2025TH142877

PATIENT
  Age: 43 Year
  Sex: Male

DRUGS (2)
  1. DABRAFENIB [Suspect]
     Active Substance: DABRAFENIB
     Indication: Gastrointestinal stromal tumour
     Dosage: 150 MG, BID
     Route: 065
     Dates: start: 202411
  2. TRAMETINIB [Suspect]
     Active Substance: TRAMETINIB
     Indication: Gastrointestinal stromal tumour
     Dosage: 2 MG, QD
     Route: 065
     Dates: start: 202411

REACTIONS (2)
  - Disease progression [Unknown]
  - Therapy partial responder [Unknown]

NARRATIVE: CASE EVENT DATE: 20250201
